FAERS Safety Report 5266755-1 (Version None)
Quarter: 2007Q1

REPORT INFORMATION
  Report Type: 
  Country: None (occurrence: None)
  Receive Date: 20070307
  Receipt Date: 20070221
  Transmission Date: 20070707
  Serious: Yes (Hospitalization)
  Sender: FDA-Public Use
  Company Number: WSDF_00611

PATIENT
  Age: 46 Year
  Sex: Male

DRUGS (6)
  1. WINRHO SDF [Suspect]
     Indication: IDIOPATHIC THROMBOCYTOPENIC PURPURA
     Dosage: 75 UG/KG ONCE IV
     Route: 042
     Dates: start: 20070125, end: 20070125
  2. PREDNISONE [Concomitant]
  3. THORAZINE [Concomitant]
  4. NEXIUM [Concomitant]
  5. DIABETA [Concomitant]
  6. ORETIC [Concomitant]

REACTIONS (12)
  - ABDOMINAL PAIN [None]
  - ARTHRALGIA [None]
  - BACK PAIN [None]
  - CHEST DISCOMFORT [None]
  - CHILLS [None]
  - CHROMATURIA [None]
  - DYSPNOEA [None]
  - GROIN PAIN [None]
  - HYPERHIDROSIS [None]
  - HYPERTENSION [None]
  - PAIN IN EXTREMITY [None]
  - TREMOR [None]
